FAERS Safety Report 8244820-4 (Version None)
Quarter: 2012Q1

REPORT INFORMATION
  Report Type: 
  Country: None (occurrence: None)
  Receive Date: 20120329
  Receipt Date: 20110531
  Transmission Date: 20120608
  Serious: No
  Sender: FDA-Public Use
  Company Number: US-MYLANLABS-2011S1010387

PATIENT
  Age: 80 Year
  Sex: Female

DRUGS (3)
  1. FENTANYL-100 [Suspect]
     Indication: PAIN
     Dosage: Q3D
     Route: 062
     Dates: start: 20110515
  2. NORCO [Concomitant]
     Dosage: 10/325MG 1-2 EVERY 4 HOURS
     Route: 048
  3. MORPHINE SULFATE [Concomitant]
     Dosage: 0.25 - 0.5CC Q1H-Q2H

REACTIONS (3)
  - AGITATION [None]
  - CONFUSIONAL STATE [None]
  - DYSTONIA [None]
